FAERS Safety Report 7247448-8 (Version None)
Quarter: 2011Q1

REPORT INFORMATION
  Report Type: 
  Country: None (occurrence: None)
  Receive Date: 20110127
  Receipt Date: 20110124
  Transmission Date: 20110831
  Serious: Yes (Death, Hospitalization, Other)
  Sender: FDA-Public Use
  Company Number: PHHY2010US35368

PATIENT
  Sex: Male

DRUGS (1)
  1. EXJADE [Suspect]
     Dosage: 1375 MG, QD
     Route: 048
     Dates: start: 20100525

REACTIONS (6)
  - HEADACHE [None]
  - NAUSEA [None]
  - ABDOMINAL DISCOMFORT [None]
  - NEOPLASM MALIGNANT [None]
  - DIARRHOEA [None]
  - MULTIPLE MYELOMA [None]
